FAERS Safety Report 25630335 (Version 2)
Quarter: 2025Q3

REPORT INFORMATION
  Report Type: Spontaneous
  Country: GB (occurrence: GB)
  Receive Date: 20250801
  Receipt Date: 20250820
  Transmission Date: 20251020
  Serious: Yes (Hospitalization, Other)
  Sender: TEVA
  Company Number: GB-002147023-NVSC2022GB041272

PATIENT
  Age: 55 Year
  Sex: Male

DRUGS (8)
  1. FINGOLIMOD [Suspect]
     Active Substance: FINGOLIMOD
     Indication: Relapsing-remitting multiple sclerosis
     Route: 048
     Dates: start: 20180131
  2. FINGOLIMOD [Suspect]
     Active Substance: FINGOLIMOD
     Indication: Relapsing-remitting multiple sclerosis
     Route: 065
     Dates: start: 2017
  3. TETRACYCLINE [Concomitant]
     Active Substance: TETRACYCLINE
     Indication: Product used for unknown indication
  4. EZETIMIBE [Concomitant]
     Active Substance: EZETIMIBE
     Indication: Product used for unknown indication
  5. LANSOPRAZOLE\METRONIDAZOLE\TETRACYCLINE [Concomitant]
     Active Substance: LANSOPRAZOLE\METRONIDAZOLE\TETRACYCLINE
     Indication: Gastrooesophageal reflux disease
     Route: 048
  6. LANSOPRAZOLE\METRONIDAZOLE\TETRACYCLINE [Concomitant]
     Active Substance: LANSOPRAZOLE\METRONIDAZOLE\TETRACYCLINE
     Indication: Gastrooesophageal reflux disease
     Route: 048
  7. METRONIDAZOLE [Concomitant]
     Active Substance: METRONIDAZOLE
     Indication: Product used for unknown indication
  8. ATORVASTATIN [Concomitant]
     Active Substance: ATORVASTATIN
     Indication: Blood cholesterol
     Route: 048

REACTIONS (6)
  - Haemorrhagic infarction [Recovered/Resolved]
  - Urosepsis [Unknown]
  - Urinary tract infection [Unknown]
  - Confusional state [Unknown]
  - Dysarthria [Unknown]
  - Endocarditis [Unknown]

NARRATIVE: CASE EVENT DATE: 20220216
